FAERS Safety Report 12448410 (Version 1)
Quarter: 2016Q2

REPORT INFORMATION
  Report Type: Spontaneous
  Country: US (occurrence: US)
  Receive Date: 20160608
  Receipt Date: 20160608
  Transmission Date: 20160815
  Serious: Yes (Other)
  Sender: FDA-Public Use
  Company Number: US-MDT-ADR-2016-01035

PATIENT
  Age: 24 Year
  Sex: Female

DRUGS (2)
  1. BACLOFEN. [Suspect]
     Active Substance: BACLOFEN
     Route: 037
  2. BACLOFEN. [Suspect]
     Active Substance: BACLOFEN
     Route: 048

REACTIONS (9)
  - Muscle spasms [Unknown]
  - Pruritus [Unknown]
  - Staphylococcal infection [Unknown]
  - Drug withdrawal syndrome [Unknown]
  - Seizure [Unknown]
  - Vomiting [Unknown]
  - Decreased appetite [Unknown]
  - Pyrexia [Unknown]
  - Rash [Unknown]

NARRATIVE: CASE EVENT DATE: 20160420
